FAERS Safety Report 6910322-8 (Version None)
Quarter: 2010Q3

REPORT INFORMATION
  Report Type: 
  Country: None (occurrence: None)
  Receive Date: 20100806
  Receipt Date: 20100727
  Transmission Date: 20110219
  Serious: Yes (Life-Threatening, Hospitalization)
  Sender: FDA-Public Use
  Company Number: IE-PFIZER INC-2010015932

PATIENT
  Age: 67 Year
  Sex: Female

DRUGS (6)
  1. GENOTROPIN [Suspect]
     Indication: HYPOPITUITARISM
     Dosage: 0.3 MG, 1X/DAY AT NIGHT
     Dates: start: 19950101, end: 20100101
  2. LEVOTHYROXINE SODIUM [Concomitant]
     Dosage: 100 MG, UNK
     Route: 048
     Dates: start: 19950101
  3. GLUCOPHAGE [Concomitant]
     Dosage: 850 MG, 3X/DAY
  4. LIPITOR [Concomitant]
     Dosage: 20 MG, NOCTURNALLY
  5. SERC [Concomitant]
     Dosage: 16 MG, 3X/DAY
  6. OXYCONTIN [Concomitant]
     Dosage: 10 MG, 2X/DAY

REACTIONS (1)
  - UTERINE CANCER [None]
